FAERS Safety Report 7686962-8 (Version None)
Quarter: 2011Q3

REPORT INFORMATION
  Report Type: 
  Country: None (occurrence: None)
  Receive Date: 20110816
  Receipt Date: 20110809
  Transmission Date: 20111222
  Serious: Yes (Death, Hospitalization, Other)
  Sender: FDA-Public Use
  Company Number: NL-GENZYME-200821136GPV

PATIENT
  Sex: Male

DRUGS (56)
  1. CYCLOPHOSPHAMIDE [Suspect]
     Dosage: 750 MG/M2 DAY 1, CYCLE 6
     Route: 042
  2. CYCLOPHOSPHAMIDE [Suspect]
     Dosage: 750 MG/M2 DAY 1, CYCLE 7
     Route: 042
  3. VINCRISTINE [Suspect]
     Indication: PERIPHERAL T-CELL LYMPHOMA UNSPECIFIED
     Dosage: 1.4 MG/M2, ONCE CYCLE 1
     Route: 042
  4. VINCRISTINE [Suspect]
     Dosage: 1.4 MG/M2, ONCE, CYCLE 8
     Route: 042
     Dates: end: 20061001
  5. PREDNISONE [Suspect]
     Dosage: 100 MG, QD ON DAYS 1-5, CYCLE 3
     Route: 048
  6. NEXIUM [Concomitant]
     Dosage: 40 MG, QD
  7. VALGANCICLOVIR [Concomitant]
     Indication: PRODUCT USED FOR UNKNOWN INDICATION
     Dosage: 900 MG, QD
     Dates: start: 20060627
  8. OXYCODONE HCL [Concomitant]
     Dosage: 3 X 5 MG, QD
     Dates: end: 20060622
  9. CAMPATH [Suspect]
     Dosage: 30 MG, DAY 1, 5, 10
     Route: 058
  10. CYCLOPHOSPHAMIDE [Suspect]
     Dosage: 750 MG/M2 DAY 1, CYCLE 2
     Route: 042
  11. CYCLOPHOSPHAMIDE [Suspect]
     Dosage: 750 MG/M2 DAY 1, CYCLE 4
     Route: 042
  12. DOXORUBICIN HCL [Suspect]
     Dosage: 50 MG/M2, DAY 1,CYCLE 5
     Route: 042
  13. PREDNISONE [Suspect]
     Dosage: 100 MG, QD ON DAYS 1-5, CYCLE 2
     Route: 048
  14. PREDNISONE [Suspect]
     Dosage: 100 MG, QD ON DAYS 1-5, CYCLE 5
     Route: 048
  15. PREDNISONE [Suspect]
     Dosage: 100 MG, QD ON DAYS 1-5, CYCLE 7
     Route: 048
  16. OXYCODONE HCL [Concomitant]
     Indication: PRODUCT USED FOR UNKNOWN INDICATION
     Dosage: 3 X 5 MG, QD
  17. CAMPATH [Suspect]
     Dosage: 30 MG, DAY 10, CYCLE 1
     Route: 058
  18. CAMPATH [Suspect]
     Dosage: 30 MG, DAY 1, 5, 10
     Route: 058
  19. CYCLOPHOSPHAMIDE [Suspect]
     Dosage: 750 MG/M2 DAY 1, CYCLE 5
     Route: 042
  20. DOXORUBICIN HCL [Suspect]
     Indication: PERIPHERAL T-CELL LYMPHOMA UNSPECIFIED
     Dosage: 50 MG/M2, DAY 1, CYCLE 1
     Route: 042
  21. COTRIM [Concomitant]
     Indication: INFECTION PROPHYLAXIS
     Dosage: 480 MG, BID, 3X/W
     Route: 065
  22. CAMPATH [Suspect]
     Dosage: 30 MG, DAY 1, 5, 10
     Route: 058
  23. CYCLOPHOSPHAMIDE [Suspect]
     Dosage: 750 MG/M2 DAY 1, CYCLE 8
     Route: 042
     Dates: end: 20061001
  24. VINCRISTINE [Suspect]
     Dosage: 1.4 MG/M2, ONCE, CYCLE 3
     Route: 042
  25. VINCRISTINE [Suspect]
     Dosage: 1.4 MG/M2, ONCE, CYCLE 5
     Route: 042
  26. PREDNISONE [Suspect]
     Indication: PERIPHERAL T-CELL LYMPHOMA UNSPECIFIED
     Dosage: 100 MG, QD ON DAYS 1-5, CYCLE 1
     Route: 048
  27. DOMPERIDON [Concomitant]
     Indication: PRODUCT USED FOR UNKNOWN INDICATION
     Dosage: 3 X 20 MG, QD
     Dates: end: 20060622
  28. DOMPERIDON [Concomitant]
     Dosage: 3 X 20 MG, QD
  29. CAMPATH [Suspect]
     Indication: PERIPHERAL T-CELL LYMPHOMA UNSPECIFIED
     Dosage: 3 MG, DAY 1, CYCLE 1
     Route: 058
  30. CAMPATH [Suspect]
     Dosage: 30 MG, DAY 1, 5, 10
     Route: 058
     Dates: end: 20061001
  31. DOXORUBICIN HCL [Suspect]
     Dosage: 50 MG/M2, DAY 1, CYCLE 2
     Route: 042
  32. DOXORUBICIN HCL [Suspect]
     Dosage: 50 MG/M2, DAY 1, CYCLE 6
     Route: 042
  33. DOXORUBICIN HCL [Suspect]
     Dosage: 50 MG/M2,  DAY 1,CYCLE 7
     Route: 042
  34. VINCRISTINE [Suspect]
     Dosage: 1.4 MG/M2, ONCE, CYCLE 2
     Route: 042
  35. VINCRISTINE [Suspect]
     Dosage: 1.4 MG/M2, ONCE, CYCLE 6
     Route: 042
  36. PREDNISONE [Suspect]
     Dosage: 100 MG, QD ON DAYS 1-5, CYCLE 6
     Route: 048
  37. ALLOPURINOL [Concomitant]
     Indication: PROPHYLAXIS
     Dosage: 300 MG, UNK
     Route: 065
  38. CAMPATH [Suspect]
     Dosage: 30 MG, DAY 1, 5, 10
     Route: 058
     Dates: end: 20061001
  39. CAMPATH [Suspect]
     Dosage: 30 MG, DAY 1, 5, 10
     Route: 058
  40. DOXORUBICIN HCL [Suspect]
     Dosage: 50 MG/M2, DAY 1, CYCLE 3
     Route: 042
  41. DOXORUBICIN HCL [Suspect]
     Dosage: 50 MG/M2, DAY 1,CYCLE 4
     Route: 042
  42. DOXORUBICIN HCL [Suspect]
     Dosage: 50 MG/M2, DAY 1, CYCLE 8
     Route: 042
     Dates: end: 20061001
  43. VINCRISTINE [Suspect]
     Dosage: 1.4 MG/M2, ONCE, CYCLE 4
     Route: 042
  44. VINCRISTINE [Suspect]
     Dosage: 1.4 MG/M2, ONCE, CYCLE 7
     Route: 042
  45. VALACICLOVIR [Concomitant]
     Indication: ANTIVIRAL PROPHYLAXIS
     Dosage: 500 MG, BID
     Route: 065
     Dates: end: 20060803
  46. CAMPATH [Suspect]
     Dosage: 10 MG, DAY 5, CYCLE 1
     Route: 058
  47. CYCLOPHOSPHAMIDE [Suspect]
     Indication: PERIPHERAL T-CELL LYMPHOMA UNSPECIFIED
     Dosage: 750 MG/M2 DAY 1, CYCLE 1
     Route: 042
  48. PREDNISONE [Suspect]
     Dosage: 100 MG, QD ON DAYS 1-5, CYCLE 4
     Route: 048
  49. PREDNISONE [Suspect]
     Dosage: 100 MG, QD ON DAYS 1-5, CYCLE 8
     Route: 048
  50. FLUCONAZOLE [Concomitant]
     Indication: ANTIFUNGAL PROPHYLAXIS
     Dosage: QD, 100-150 MG
     Route: 065
  51. ANTIHISTAMINES [Concomitant]
     Indication: ANTIALLERGIC THERAPY
     Dosage: UNK MG, UNK
     Route: 065
  52. NEXIUM [Concomitant]
     Indication: PRODUCT USED FOR UNKNOWN INDICATION
     Dosage: 40 MG, QD
     Dates: end: 20060622
  53. CAMPATH [Suspect]
     Dosage: 30 MG, DAY 1, 5, 10
     Route: 058
  54. CYCLOPHOSPHAMIDE [Suspect]
     Dosage: 750 MG/M2 DAY 1, CYCLE 3
     Route: 042
  55. PEGFILGRASTIM [Concomitant]
     Indication: PRODUCT USED FOR UNKNOWN INDICATION
     Dosage: 6 MG, QS
     Route: 058
  56. ACETAMINOPHEN [Concomitant]
     Indication: PREMEDICATION
     Dosage: 1000 MG, UNK
     Route: 065

REACTIONS (10)
  - FEBRILE NEUTROPENIA [None]
  - CYTOMEGALOVIRUS INFECTION [None]
  - HISTIOCYTOSIS HAEMATOPHAGIC [None]
  - ABDOMINAL PAIN UPPER [None]
  - ABDOMINAL PAIN [None]
  - T-CELL LYMPHOMA [None]
  - EPSTEIN-BARR VIRUS INFECTION [None]
  - VOMITING [None]
  - LYMPHOPROLIFERATIVE DISORDER [None]
  - NAUSEA [None]
